FAERS Safety Report 9375811 (Version 3)
Quarter: 2015Q1

REPORT INFORMATION
  Report Type: Report from Study
  Country: JP (occurrence: JP)
  Receive Date: 20130628
  Receipt Date: 20150306
  Transmission Date: 20150721
  Serious: Yes (Death, Other)
  Sender: FDA-Public Use
  Company Number: JP-AMGEN-JPNCT2013045674

PATIENT
  Age: 73 Year
  Sex: Male
  Weight: 52 kg

DRUGS (15)
  1. NOVAMIN                            /00013304/ [Concomitant]
     Dosage: 15 MG, QD
     Route: 048
     Dates: start: 20130605, end: 20130618
  2. NEXIUM [Concomitant]
     Active Substance: ESOMEPRAZOLE MAGNESIUM
     Dosage: 20 MG, QD
     Route: 048
     Dates: start: 20121221
  3. FLIVAS [Concomitant]
     Active Substance: NAFTOPIDIL
     Dosage: 75 MG, QD
     Route: 048
     Dates: start: 20120829
  4. ROCALTROL [Concomitant]
     Active Substance: CALCITRIOL
     Dosage: UNK
  5. CASODEX [Concomitant]
     Active Substance: BICALUTAMIDE
     Dosage: UNK
     Route: 065
     Dates: start: 20120718, end: 20121125
  6. LOXONIN [Concomitant]
     Active Substance: LOXOPROFEN SODIUM
     Dosage: 3 DF, QD
     Route: 048
     Dates: start: 20121126
  7. MUCOSTA [Concomitant]
     Active Substance: REBAMIPIDE
     Dosage: 3 DF, QD
     Route: 048
     Dates: start: 20121126
  8. ASPARA-CA [Concomitant]
     Active Substance: CALCIUM ASPARTATE
     Dosage: UNK
     Route: 048
     Dates: start: 20120718, end: 20120729
  9. ALFAROL [Concomitant]
     Active Substance: ALFACALCIDOL
     Dosage: UNK
     Route: 048
     Dates: start: 20120718, end: 20120828
  10. DENOSUMAB [Suspect]
     Active Substance: DENOSUMAB
     Indication: METASTASES TO BONE
     Dosage: 120 MG, UNK
     Route: 058
     Dates: start: 20120718
  11. LEUPLIN [Concomitant]
     Active Substance: LEUPROLIDE ACETATE
     Dosage: UNK
     Route: 065
     Dates: start: 20120718
  12. PROSTAL                            /00093602/ [Concomitant]
     Dosage: UNK
     Route: 065
     Dates: start: 20121221, end: 20130409
  13. MAGMITT [Concomitant]
     Active Substance: MAGNESIUM OXIDE
     Dosage: 990 MG, QD
     Route: 048
     Dates: start: 20130605
  14. DECADRON [Concomitant]
     Active Substance: DEXAMETHASONE
     Dosage: UNK
     Route: 065
     Dates: start: 20130605
  15. GASTER [Concomitant]
     Active Substance: FAMOTIDINE
     Dosage: UNK
     Route: 048
     Dates: start: 20120718, end: 20121220

REACTIONS (3)
  - Hypophosphataemia [Not Recovered/Not Resolved]
  - Death [Fatal]
  - Back pain [Not Recovered/Not Resolved]

NARRATIVE: CASE EVENT DATE: 20120730
